FAERS Safety Report 6376011-6 (Version None)
Quarter: 2009Q3

REPORT INFORMATION
  Report Type: 
  Country: None (occurrence: None)
  Receive Date: 20090924
  Receipt Date: 20090915
  Transmission Date: 20100115
  Serious: Yes (Other)
  Sender: FDA-Public Use
  Company Number: PHHY2009FR12203

PATIENT
  Sex: Female
  Weight: 54 kg

DRUGS (2)
  1. GLEEVEC [Suspect]
     Indication: CHRONIC MYELOID LEUKAEMIA
     Dosage: 400 MG, UNK
     Dates: start: 20070730
  2. GLEEVEC [Suspect]
     Dosage: 300 MG, UNK

REACTIONS (6)
  - BREAST CANCER [None]
  - BREAST CANCER IN SITU [None]
  - BREAST MASS [None]
  - NEUTROPHIL COUNT DECREASED [None]
  - TENDON SHEATH LESION EXCISION [None]
  - WHITE BLOOD CELL COUNT DECREASED [None]
